FAERS Safety Report 6175805-X (Version None)
Quarter: 2009Q2

REPORT INFORMATION
  Report Type: 
  Country: None (occurrence: None)
  Receive Date: 20090501
  Receipt Date: 20090427
  Transmission Date: 20091009
  Serious: Yes (Hospitalization)
  Sender: FDA-Public Use
  Company Number: US-BIOGENIDEC-2008BI018192

PATIENT
  Age: 48 Year
  Sex: Female

DRUGS (2)
  1. TYSABRI [Suspect]
     Indication: MULTIPLE SCLEROSIS
     Route: 042
     Dates: start: 20080605, end: 20080601
  2. TYSABRI [Suspect]
     Route: 042
     Dates: start: 20081125

REACTIONS (6)
  - ASTHENIA [None]
  - BLOOD IRON DECREASED [None]
  - COGNITIVE DISORDER [None]
  - FATIGUE [None]
  - PSYCHIATRIC EVALUATION [None]
  - WEIGHT INCREASED [None]
